FAERS Safety Report 14769833 (Version 7)
Quarter: 2022Q1

REPORT INFORMATION
  Report Type: Spontaneous
  Country: US (occurrence: US)
  Receive Date: 20180417
  Receipt Date: 20220203
  Transmission Date: 20220423
  Serious: Yes (Hospitalization, Other)
  Sender: FDA-Public Use
  Company Number: US-PFIZER INC-2018156643

PATIENT
  Age: 34 Year
  Sex: Male

DRUGS (16)
  1. PREVACID [Suspect]
     Active Substance: LANSOPRAZOLE
     Dosage: UNK
     Route: 048
     Dates: start: 200501, end: 201510
  2. LANSOPRAZOLE [Suspect]
     Active Substance: LANSOPRAZOLE
     Indication: Gastrooesophageal reflux disease
     Dosage: 30 MG, 1X/DAY
     Dates: start: 20130413, end: 20171006
  3. PROTONIX [Suspect]
     Active Substance: PANTOPRAZOLE SODIUM
     Indication: Gastrooesophageal reflux disease
     Dosage: 40 MG, 1X/DAY
     Route: 042
     Dates: start: 20130604, end: 20150920
  4. NEXIUM [Suspect]
     Active Substance: ESOMEPRAZOLE MAGNESIUM
     Indication: Gastrooesophageal reflux disease
     Dosage: 40 MG, 1X/DAY
     Dates: start: 20121121, end: 20150922
  5. NEXIUM 24HR [Suspect]
     Active Substance: ESOMEPRAZOLE MAGNESIUM
     Dosage: UNK
     Dates: start: 200501, end: 201510
  6. DEXILANT [Suspect]
     Active Substance: DEXLANSOPRAZOLE
     Dosage: UNK
     Route: 048
     Dates: start: 200501, end: 201510
  7. PREVACID 24 HR [Suspect]
     Active Substance: LANSOPRAZOLE
     Dosage: UNK
     Dates: start: 200501, end: 201510
  8. PRILOSEC [Suspect]
     Active Substance: OMEPRAZOLE MAGNESIUM
     Dosage: UNK
     Route: 048
     Dates: start: 200501, end: 201510
  9. PRILOSEC OTC [Suspect]
     Active Substance: OMEPRAZOLE MAGNESIUM
     Dosage: UNK
     Dates: start: 200501, end: 201510
  10. AMOXICILLIN [Concomitant]
     Active Substance: AMOXICILLIN
     Indication: Antibiotic therapy
     Dosage: UNK
     Dates: start: 20121121
  11. METOPROLOL [Concomitant]
     Active Substance: METOPROLOL
     Indication: Hypertension
     Dosage: UNK
     Dates: start: 20110919, end: 20140113
  12. ALPRAZOLAM [Concomitant]
     Active Substance: ALPRAZOLAM
     Indication: Anxiety
     Dosage: UNK
     Dates: start: 20110919, end: 20130714
  13. ZANTAC 150 (RANITIDINE HYDROCHLORIDE) [Concomitant]
     Active Substance: RANITIDINE HYDROCHLORIDE
     Dosage: UNK
     Dates: start: 20130604
  14. RANITIDINE [Concomitant]
     Active Substance: RANITIDINE
     Dosage: UNK
     Dates: start: 20130412, end: 20130514
  15. RANITIDINE [Concomitant]
     Active Substance: RANITIDINE
     Dosage: UNK
     Dates: start: 20130514
  16. TUMS [Concomitant]
     Active Substance: CALCIUM CARBONATE
     Dosage: UNK, AS NEEDED

REACTIONS (3)
  - Acute kidney injury [Not Recovered/Not Resolved]
  - Chronic kidney disease [Unknown]
  - Gastrooesophageal reflux disease [Not Recovered/Not Resolved]

NARRATIVE: CASE EVENT DATE: 20140826
